FAERS Safety Report 7536326-2 (Version None)
Quarter: 2011Q2

REPORT INFORMATION
  Report Type: 
  Country: None (occurrence: None)
  Receive Date: 20110602
  Receipt Date: 20110523
  Transmission Date: 20111010
  Serious: Yes (Hospitalization, Other)
  Sender: FDA-Public Use
  Company Number: 2009JP007358

PATIENT
  Age: 65 Year
  Sex: Male
  Weight: 80 kg

DRUGS (16)
  1. TACROLIMUS [Suspect]
     Indication: LUPUS NEPHRITIS
     Dosage: 0.5 MG, QOD, ORAL 1 MG, ORAL 0.5MG, ORAL
     Route: 048
     Dates: start: 20090518, end: 20090713
  2. TACROLIMUS [Suspect]
     Indication: LUPUS NEPHRITIS
     Dosage: 0.5 MG, QOD, ORAL 1 MG, ORAL 0.5MG, ORAL
     Route: 048
     Dates: start: 20090824, end: 20100831
  3. TACROLIMUS [Suspect]
     Indication: LUPUS NEPHRITIS
     Dosage: 0.5 MG, QOD, ORAL 1 MG, ORAL 0.5MG, ORAL
     Route: 048
     Dates: start: 20090727, end: 20090824
  4. FOSAMAX [Concomitant]
  5. LASIX [Concomitant]
  6. WARFARIN SODIUM [Concomitant]
  7. BISOPROLOL FUMARATE [Concomitant]
  8. DIOVAN [Concomitant]
  9. MEXITIL [Concomitant]
  10. COTRIM [Concomitant]
  11. PREDNISOLONE [Concomitant]
  12. TAKEPRON (LANSOPRAZOLE) [Concomitant]
  13. ITRACONAZOLE [Suspect]
     Dosage: 20 ML, ORAL
     Route: 048
     Dates: end: 20100525
  14. NORVASC [Concomitant]
  15. ALLOPURINOL [Concomitant]
  16. ALFAROL (ALFACALCIDOL) [Concomitant]

REACTIONS (6)
  - TREMOR [None]
  - DRUG INTERACTION [None]
  - PROSTATE CANCER [None]
  - URINARY RETENTION [None]
  - NEPHROTIC SYNDROME [None]
  - DRUG LEVEL INCREASED [None]
